FAERS Safety Report 24873641 (Version 1)
Quarter: 2025Q1

REPORT INFORMATION
  Report Type: Spontaneous
  Country: US (occurrence: US)
  Receive Date: 20250122
  Receipt Date: 20250122
  Transmission Date: 20250409
  Serious: Yes (Death, Hospitalization)
  Sender: MYLAN
  Company Number: US-MYLANLABS-2025M1004240

PATIENT
  Age: 9 Year
  Sex: Male

DRUGS (25)
  1. VANCOMYCIN [Suspect]
     Active Substance: VANCOMYCIN
     Indication: Respiratory tract infection
     Dosage: 60 MILLIGRAM/KILOGRAM, QD
     Route: 065
  2. VANCOMYCIN [Suspect]
     Active Substance: VANCOMYCIN
     Indication: Achromobacter infection
  3. PIPERACILLIN AND TAZOBACTAM [Suspect]
     Active Substance: PIPERACILLIN SODIUM\TAZOBACTAM SODIUM
     Indication: Respiratory tract infection
     Route: 065
  4. PIPERACILLIN AND TAZOBACTAM [Suspect]
     Active Substance: PIPERACILLIN SODIUM\TAZOBACTAM SODIUM
     Indication: Achromobacter infection
  5. AMIKACIN [Suspect]
     Active Substance: AMIKACIN
     Indication: Respiratory tract infection
     Route: 065
  6. AMIKACIN [Suspect]
     Active Substance: AMIKACIN
     Indication: Achromobacter infection
  7. COLISTIN [Suspect]
     Active Substance: COLISTIN
     Indication: Respiratory tract infection
     Dosage: 5 MILLIGRAM/KILOGRAM, Q8H, 5 MG/KG/DAY
     Route: 065
  8. COLISTIN [Suspect]
     Active Substance: COLISTIN
     Indication: Achromobacter infection
  9. LEVOFLOXACIN [Suspect]
     Active Substance: LEVOFLOXACIN
     Indication: Respiratory tract infection
     Route: 065
  10. LEVOFLOXACIN [Suspect]
     Active Substance: LEVOFLOXACIN
     Indication: Achromobacter infection
  11. AZITHROMYCIN [Suspect]
     Active Substance: AZITHROMYCIN
     Indication: Respiratory tract infection
     Route: 065
  12. AZITHROMYCIN [Suspect]
     Active Substance: AZITHROMYCIN
     Indication: Achromobacter infection
  13. AMPHOTERICIN B [Suspect]
     Active Substance: AMPHOTERICIN B
     Indication: Respiratory tract infection
     Route: 065
  14. AMPHOTERICIN B [Suspect]
     Active Substance: AMPHOTERICIN B
     Indication: Achromobacter infection
  15. TIGECYCLINE [Suspect]
     Active Substance: TIGECYCLINE
     Indication: Respiratory tract infection
     Route: 065
  16. TIGECYCLINE [Suspect]
     Active Substance: TIGECYCLINE
     Indication: Achromobacter infection
  17. DOCETAXEL [Concomitant]
     Active Substance: DOCETAXEL
     Indication: Chronic myeloid leukaemia
     Route: 065
  18. CARBOPLATIN [Concomitant]
     Active Substance: CARBOPLATIN
     Indication: Chronic myeloid leukaemia
     Route: 065
  19. TRASTUZUMAB [Concomitant]
     Active Substance: TRASTUZUMAB
     Indication: Chronic myeloid leukaemia
     Route: 065
  20. PERTUZUMAB [Concomitant]
     Active Substance: PERTUZUMAB
     Indication: Chronic myeloid leukaemia
     Route: 065
  21. RITUXIMAB [Concomitant]
     Active Substance: RITUXIMAB
     Indication: Epstein-Barr virus infection reactivation
     Route: 065
  22. MEROPENEM [Concomitant]
     Active Substance: MEROPENEM
     Indication: Respiratory tract infection
     Route: 065
  23. MEROPENEM [Concomitant]
     Active Substance: MEROPENEM
     Indication: Achromobacter infection
     Dosage: 120 MILLIGRAM/KILOGRAM, Q3H, 120 MG/KG/DAY
     Route: 065
  24. AVIBACTAM SODIUM\CEFTAZIDIME [Concomitant]
     Active Substance: AVIBACTAM SODIUM\CEFTAZIDIME
     Indication: Respiratory tract infection
     Route: 065
  25. AVIBACTAM SODIUM\CEFTAZIDIME [Concomitant]
     Active Substance: AVIBACTAM SODIUM\CEFTAZIDIME
     Indication: Achromobacter infection

REACTIONS (1)
  - Drug ineffective [Fatal]
